FAERS Safety Report 19106409 (Version 1)
Quarter: 2021Q2

REPORT INFORMATION
  Report Type: Spontaneous
  Country: MA (occurrence: MA)
  Receive Date: 20210408
  Receipt Date: 20210408
  Transmission Date: 20210717
  Serious: Yes (Other)
  Sender: FDA-Public Use
  Company Number: MA-HIKMA PHARMACEUTICALS USA INC.-MA-H14001-21-01694

PATIENT
  Age: 23 Year
  Sex: Female

DRUGS (1)
  1. PIROXICAM BETADEX [Suspect]
     Active Substance: PIROXICAM BETADEX
     Indication: DYSMENORRHOEA
     Dosage: UNKNOWN
     Route: 065

REACTIONS (4)
  - Self-medication [Recovered/Resolved with Sequelae]
  - Pigmentation disorder [Unknown]
  - Dermatitis bullous [Recovered/Resolved with Sequelae]
  - Fixed eruption [Recovered/Resolved with Sequelae]
